FAERS Safety Report 11365854 (Version 2)
Quarter: 2015Q3

REPORT INFORMATION
  Report Type: Other
  Country: TR (occurrence: TR)
  Receive Date: 20150811
  Receipt Date: 20150911
  Transmission Date: 20151125
  Serious: Yes (Hospitalization)
  Sender: FDA-Public Use
  Company Number: TR-ENDO PHARMACEUTICALS INC-2015-002197

PATIENT
  Age: 43 Year
  Sex: Male

DRUGS (1)
  1. AMLODIPINE [Suspect]
     Active Substance: AMLODIPINE BESYLATE
     Indication: PRODUCT USED FOR UNKNOWN INDICATION
     Route: 065

REACTIONS (3)
  - Intentional overdose [Unknown]
  - Shock [Unknown]
  - Suicide attempt [Unknown]
